FAERS Safety Report 5744470-5 (Version None)
Quarter: 2008Q2

REPORT INFORMATION
  Report Type: 
  Country: None (occurrence: None)
  Receive Date: 20080516
  Receipt Date: 20080430
  Transmission Date: 20081010
  Serious: Yes (Disabling)
  Sender: FDA-Public Use
  Company Number: 2008AL002998

PATIENT
  Sex: Female

DRUGS (1)
  1. DIGOXIN [Suspect]
     Indication: CARDIAC HYPERTROPHY
     Dosage: PO
     Route: 048

REACTIONS (2)
  - ASTHENIA [None]
  - IMPAIRED WORK ABILITY [None]
